FAERS Safety Report 15296998 (Version 4)
Quarter: 2019Q1

REPORT INFORMATION
  Report Type: Report from Study
  Country: UG (occurrence: UG)
  Receive Date: 20180820
  Receipt Date: 20190205
  Transmission Date: 20190417
  Serious: Yes (Congenital Anomaly, Other)
  Sender: FDA-Public Use
  Company Number: UG-MYLANLABS-2018M1062242

PATIENT
  Sex: Male
  Weight: 3.4 kg

DRUGS (4)
  1. LAMIVUDINE, TENOFOVIR MYLAN [Suspect]
     Active Substance: LAMIVUDINE\TENOFOVIR
     Indication: HIV INFECTION
     Dosage: 600 MG, QD
     Route: 064
     Dates: start: 20180419
  2. TMP-SMX [Concomitant]
     Active Substance: SULFAMETHOXAZOLE\TRIMETHOPRIM
     Indication: PRODUCT USED FOR UNKNOWN INDICATION
     Dosage: UNK
  3. CLOTRIMAZOLE. [Concomitant]
     Active Substance: CLOTRIMAZOLE
     Indication: PRODUCT USED FOR UNKNOWN INDICATION
     Dosage: UNK
  4. DOLUTEGRAVIR [Suspect]
     Active Substance: DOLUTEGRAVIR
     Indication: HIV INFECTION
     Dosage: 50 MG, QD
     Route: 064
     Dates: start: 20180419

REACTIONS (4)
  - Congenital umbilical hernia [Unknown]
  - Congenital skin dimples [Unknown]
  - Conjunctivitis [Unknown]
  - Foetal exposure during pregnancy [Recovered/Resolved]
